FAERS Safety Report 7548758-7 (Version None)
Quarter: 2011Q2

REPORT INFORMATION
  Report Type: 
  Country: None (occurrence: None)
  Receive Date: 20110615
  Receipt Date: 20110531
  Transmission Date: 20111010
  Serious: Yes (Hospitalization, Other)
  Sender: FDA-Public Use
  Company Number: US-ELI_LILLY_AND_COMPANY-US200801000765

PATIENT
  Age: 74 Year
  Sex: Male

DRUGS (7)
  1. OLANZAPINE [Suspect]
     Indication: PSYCHOTIC DISORDER
     Dosage: 2.5 MG, EACH EVENING
  2. LAMOTRIGINE [Concomitant]
     Dosage: 200 MG, EACH EVENING
  3. LAMOTRIGINE [Concomitant]
     Dosage: 25 MG, DAILY (1/D)
     Route: 048
  4. FLUTICASONE PROPIONATE [Concomitant]
     Indication: CHRONIC OBSTRUCTIVE PULMONARY DISEASE
     Dosage: UNK, DAILY (1/D)
     Route: 045
  5. METOPROLOL [Concomitant]
     Indication: HYPERTENSION
     Dosage: 50 MG, 2/D
  6. FLUTICASONE PROPIONATE [Concomitant]
     Dosage: 500 UG, 2/D
     Route: 055
  7. HYDROCHLOROTHIAZIDE [Concomitant]
     Indication: HYPERTENSION
     Dosage: 25 MG, DAILY (1/D)

REACTIONS (3)
  - URINARY INCONTINENCE [None]
  - URINARY RETENTION [None]
  - RENAL FAILURE [None]
